FAERS Safety Report 9398524 (Version 2)
Quarter: 2013Q3

REPORT INFORMATION
  Report Type: Spontaneous
  Country: GB (occurrence: GB)
  Receive Date: 20130712
  Receipt Date: 20130729
  Transmission Date: 20140515
  Serious: Yes (Death, Life-Threatening)
  Sender: FDA-Public Use
  Company Number: GB-WATSON-2013-12244

PATIENT
  Age: 58 Year
  Sex: Male

DRUGS (2)
  1. BISOPROLOL (UNKNOWN) [Suspect]
     Indication: ARRHYTHMIA SUPRAVENTRICULAR
     Dosage: 3.75 MG, UNKNOWN
     Route: 048
  2. VERAPAMIL HYDROCHLORIDE (WATSON LABORATORIES) (VERAPAMIL HYDROCHLORIDE) UNKNOWN, UNK UNK [Suspect]
     Indication: ARRHYTHMIA SUPRAVENTRICULAR
     Dosage: 240 MG, UNKNOWN
     Route: 048

REACTIONS (4)
  - Cardiac failure [Fatal]
  - Fatigue [Fatal]
  - Drug interaction [Fatal]
  - Dyspnoea [Fatal]
